FAERS Safety Report 9328626 (Version 1)
Quarter: 2013Q2

REPORT INFORMATION
  Report Type: Spontaneous
  Country: US (occurrence: US)
  Receive Date: 20130604
  Receipt Date: 20130604
  Transmission Date: 20140414
  Serious: Yes (Hospitalization)
  Sender: FDA-Public Use
  Company Number: US-SANOFI-AVENTIS-2013SA008385

PATIENT
  Sex: Female

DRUGS (3)
  1. LANTUS [Suspect]
     Dosage: DOSE:15 UNIT(S)
  2. LANTUS [Suspect]
     Dosage: DOSE:90 UNIT(S)
  3. INSULIN ASPART [Suspect]

REACTIONS (4)
  - Urinary tract infection [Unknown]
  - Hypertension [Not Recovered/Not Resolved]
  - Generalised oedema [Unknown]
  - Oedema peripheral [Not Recovered/Not Resolved]
